FAERS Safety Report 22126062 (Version 1)
Quarter: 2023Q1

REPORT INFORMATION
  Report Type: Spontaneous
  Country: US (occurrence: US)
  Receive Date: 20230322
  Receipt Date: 20230322
  Transmission Date: 20230418
  Serious: No
  Sender: FDA-Public Use
  Company Number: US-ALLERGAN-2223460US

PATIENT
  Age: 45 Year
  Sex: Female
  Weight: 68.03 kg

DRUGS (2)
  1. LATISSE [Suspect]
     Active Substance: BIMATOPROST
     Indication: Growth of eyelashes
     Dosage: 2 GTT, ONE DROP IN EACH EYE
     Dates: start: 2019, end: 20220624
  2. FLONASE [Concomitant]
     Active Substance: FLUTICASONE PROPIONATE
     Indication: Product used for unknown indication

REACTIONS (6)
  - Eye infection [Recovered/Resolved]
  - Eye discharge [Recovered/Resolved]
  - Incorrect route of product administration [Unknown]
  - Ocular hyperaemia [Recovered/Resolved]
  - Swelling [Recovered/Resolved]
  - Vision blurred [Recovered/Resolved]

NARRATIVE: CASE EVENT DATE: 20220624
